FAERS Safety Report 6558854-9 (Version None)
Quarter: 2010Q1

REPORT INFORMATION
  Report Type: 
  Country: None (occurrence: None)
  Receive Date: 20100129
  Receipt Date: 20100125
  Transmission Date: 20100710
  Serious: Yes (Other)
  Sender: FDA-Public Use
  Company Number: GB-WATSON-2010-01009

PATIENT
  Sex: Male

DRUGS (2)
  1. SIMVASTATIN [Suspect]
     Indication: HYPERLIPIDAEMIA
     Dosage: UNK MG, DAILY
     Route: 048
  2. EZETIMIBE [Suspect]
     Indication: HYPERLIPIDAEMIA

REACTIONS (1)
  - TENDON RUPTURE [None]
